FAERS Safety Report 25867494 (Version 2)
Quarter: 2025Q4

REPORT INFORMATION
  Report Type: Spontaneous
  Country: EU (occurrence: EU)
  Receive Date: 20251001
  Receipt Date: 20251017
  Transmission Date: 20260117
  Serious: Yes (Death, Hospitalization)
  Sender: TEVA
  Company Number: EU-TEVA-VS-3376702

PATIENT
  Age: 71 Year
  Sex: Male

DRUGS (2)
  1. ACETAMINOPHEN [Suspect]
     Active Substance: ACETAMINOPHEN
     Indication: Pyrexia
     Route: 065
  2. IBUPROFEN [Suspect]
     Active Substance: IBUPROFEN
     Indication: Pyrexia
     Route: 065

REACTIONS (3)
  - Toxic epidermal necrolysis [Fatal]
  - Intentional product misuse [Fatal]
  - Drug ineffective [Unknown]
